FAERS Safety Report 24809821 (Version 1)
Quarter: 2025Q1

REPORT INFORMATION
  Report Type: Spontaneous
  Country: CA (occurrence: CA)
  Receive Date: 20250106
  Receipt Date: 20250106
  Transmission Date: 20250409
  Serious: Yes (Other)
  Sender: ACCORD
  Company Number: None

PATIENT

DRUGS (1)
  1. FLUOROURACIL [Suspect]
     Active Substance: FLUOROURACIL
     Indication: Chemotherapy
     Route: 042

REACTIONS (5)
  - Accidental overdose [Unknown]
  - Device infusion issue [Unknown]
  - Illness [Unknown]
  - Visual impairment [Unknown]
  - Incorrect drug administration rate [Unknown]
